FAERS Safety Report 6924081-6 (Version None)
Quarter: 2010Q3

REPORT INFORMATION
  Report Type: 
  Country: None (occurrence: None)
  Receive Date: 20100813
  Receipt Date: 20100804
  Transmission Date: 20110219
  Serious: Yes (Hospitalization)
  Sender: FDA-Public Use
  Company Number: US-AMGEN-QUU368008

PATIENT
  Sex: Female

DRUGS (1)
  1. ENBREL [Suspect]
     Indication: PSORIATIC ARTHROPATHY
     Route: 058
     Dates: start: 20041204, end: 20090601

REACTIONS (7)
  - BONE MARROW OEDEMA [None]
  - HYPERTENSION [None]
  - IMPAIRED HEALING [None]
  - LATENT TUBERCULOSIS [None]
  - OEDEMA PERIPHERAL [None]
  - OVERWEIGHT [None]
  - PYREXIA [None]
